FAERS Safety Report 20366384 (Version 1)
Quarter: 2022Q1

REPORT INFORMATION
  Report Type: Spontaneous
  Country: US (occurrence: US)
  Receive Date: 20220123
  Receipt Date: 20220123
  Transmission Date: 20220423
  Serious: No
  Sender: FDA-Public Use
  Company Number: US-BIOGEN-2021BI01017534

PATIENT
  Sex: Female
  Weight: 57.204 kg

DRUGS (1)
  1. AMPYRA [Suspect]
     Active Substance: DALFAMPRIDINE
     Indication: Product used for unknown indication
     Dosage: UNK
     Route: 065
     Dates: start: 201005, end: 201007

REACTIONS (3)
  - Ill-defined disorder [Unknown]
  - Drug hypersensitivity [Recovered/Resolved]
  - Drug ineffective [Unknown]
